FAERS Safety Report 7250422-9 (Version None)
Quarter: 2011Q1

REPORT INFORMATION
  Report Type: 
  Country: None (occurrence: None)
  Receive Date: 20110119
  Receipt Date: 20110107
  Transmission Date: 20110831
  Serious: Yes (Hospitalization)
  Sender: FDA-Public Use
  Company Number: DSJ-2011-00353

PATIENT
  Age: 65 Year
  Sex: Female

DRUGS (5)
  1. INDAPAMIDE (INDAPAMIDE) (INDAPAMIDE) [Concomitant]
  2. METFORMIN HCL [Concomitant]
  3. METHYLDOPA [Suspect]
     Indication: PRODUCT USED FOR UNKNOWN INDICATION
     Dosage: PER ORAL
     Route: 048
     Dates: start: 20091201, end: 20100720
  4. BENICAR [Suspect]
     Indication: HYPERTENSION
     Dosage: 40 MG (1 IN 1 D), PER ORAL
     Route: 048
     Dates: start: 20091101
  5. HYDRALAZINE (HYDRALAZINE) (HYDRALAZINE) [Concomitant]

REACTIONS (1)
  - ANAEMIA HAEMOLYTIC AUTOIMMUNE [None]
